FAERS Safety Report 16548818 (Version 1)
Quarter: 2019Q3

REPORT INFORMATION
  Report Type: Spontaneous
  Country: ES (occurrence: ES)
  Receive Date: 20190709
  Receipt Date: 20190709
  Transmission Date: 20191004
  Serious: Yes (Hospitalization)
  Sender: FDA-Public Use
  Company Number: PHHY2019ES156245

PATIENT
  Age: 36 Year
  Sex: Male

DRUGS (3)
  1. AMOXICILLIN-CLAVULANIC ACID [Suspect]
     Active Substance: AMOXICILLIN\CLAVULANIC ACID
     Indication: TOOTH INFECTION
     Dosage: UNK
     Route: 048
     Dates: start: 20190303, end: 20190303
  2. METAMIZOL [Suspect]
     Active Substance: METAMIZOLE SODIUM
     Indication: TOOTHACHE
     Dosage: UNK
     Route: 048
     Dates: start: 20190303, end: 20190303
  3. PARACETAMOL [Suspect]
     Active Substance: ACETAMINOPHEN
     Indication: TOOTHACHE
     Dosage: UNK
     Route: 048
     Dates: start: 20190303, end: 20190306

REACTIONS (1)
  - Acute generalised exanthematous pustulosis [Recovered/Resolved]

NARRATIVE: CASE EVENT DATE: 20190304
